FAERS Safety Report 9741925 (Version 2)
Quarter: 2013Q4

REPORT INFORMATION
  Report Type: Spontaneous
  Country: AU (occurrence: AU)
  Receive Date: 20131210
  Receipt Date: 20131210
  Transmission Date: 20140711
  Serious: Yes (Other)
  Sender: FDA-Public Use
  Company Number: AU-ACCORD-020687

PATIENT
  Sex: 0

DRUGS (4)
  1. QUETIAPINE FUMARATE [Suspect]
     Indication: BIPOLAR DISORDER
     Route: 064
  2. PHENELZINE [Suspect]
     Indication: BIPOLAR DISORDER
     Route: 064
  3. LITHIUM [Suspect]
     Indication: BIPOLAR DISORDER
     Route: 064
  4. METFORMIN [Suspect]
     Indication: POLYCYSTIC OVARIES
     Route: 064

REACTIONS (4)
  - Macrosomia [Unknown]
  - Tachycardia foetal [Unknown]
  - Foetal exposure during pregnancy [Unknown]
  - Foetal hypokinesia [Unknown]
